FAERS Safety Report 15369856 (Version 2)
Quarter: 2018Q3

REPORT INFORMATION
  Report Type: Spontaneous
  Country: US (occurrence: US)
  Receive Date: 20180911
  Receipt Date: 20180920
  Transmission Date: 20181010
  Serious: No
  Sender: FDA-Public Use
  Company Number: US-PFIZER INC-2018362229

PATIENT
  Age: 75 Year
  Sex: Female
  Weight: 46.27 kg

DRUGS (5)
  1. GABAPENTIN. [Suspect]
     Active Substance: GABAPENTIN
     Dosage: 600 MG, 3X/DAY; (TAKES 1800MILLIGRAMS DAILY EVERY 6 HOURS)
     Route: 048
     Dates: start: 2011
  2. TITANIUM DIOXIDE. [Suspect]
     Active Substance: TITANIUM DIOXIDE
     Dosage: UNK
  3. VALSARTAN. [Concomitant]
     Active Substance: VALSARTAN
     Indication: HYPERTENSION
     Dosage: UNK
  4. LEVOTHYROXINE. [Concomitant]
     Active Substance: LEVOTHYROXINE
     Indication: HYPOTHYROIDISM
     Dosage: UNK
  5. GABAPENTIN. [Suspect]
     Active Substance: GABAPENTIN
     Indication: POST HERPETIC NEURALGIA
     Dosage: 600 MG, 3X/DAY(TAKE TWO 300 MG CAPSULE, THREE TIMES A DAY)
     Route: 048
     Dates: start: 2013

REACTIONS (12)
  - Pain [Unknown]
  - Reaction to excipient [Unknown]
  - Nausea [Unknown]
  - Feeling abnormal [Unknown]
  - Herpes zoster [Recovered/Resolved]
  - Decreased appetite [Unknown]
  - Weight decreased [Not Recovered/Not Resolved]
  - Irritability [Unknown]
  - Malaise [Unknown]
  - Body height decreased [Unknown]
  - Underweight [Unknown]
  - Pancreatic cyst [Not Recovered/Not Resolved]

NARRATIVE: CASE EVENT DATE: 2011
